FAERS Safety Report 23430685 (Version 1)
Quarter: 2024Q1

REPORT INFORMATION
  Report Type: Spontaneous
  Country: IT (occurrence: IT)
  Receive Date: 20240123
  Receipt Date: 20240123
  Transmission Date: 20240410
  Serious: Yes (Hospitalization, Other)
  Sender: FDA-Public Use
  Company Number: IT-CELLTRION INC.-2024IT001157

PATIENT

DRUGS (1)
  1. ADALIMUMAB [Suspect]
     Active Substance: ADALIMUMAB\ISOPROPYL ALCOHOL
     Indication: Crohn^s disease
     Dosage: 40 MILLIGRAM, Q2WK (ADDITIONAL INFO: DOSAGE1: UNIT=NOT AVAILABLE)
     Route: 065

REACTIONS (2)
  - Crohn^s disease [Recovered/Resolved]
  - Spondylitis [Recovering/Resolving]
